FAERS Safety Report 5641909-0 (Version None)
Quarter: 2008Q1

REPORT INFORMATION
  Report Type: 
  Country: None (occurrence: None)
  Receive Date: 20080131
  Receipt Date: 20071026
  Transmission Date: 20080703
  Serious: Yes (Hospitalization, Other)
  Sender: FDA-Public Use
  Company Number: 163-21880-07101591

PATIENT
  Age: 72 Year
  Sex: Male

DRUGS (4)
  1. REVLIMID [Suspect]
     Indication: MULTIPLE MYELOMA
     Dosage: 25 MG, DAILY X21D/28D, ORAL
     Route: 048
     Dates: start: 20070712, end: 20070803
  2. REVLIMID [Suspect]
     Dosage: 10 MG, DAILY X21D/28D, ORAL
     Route: 048
     Dates: start: 20070810, end: 20070927
  3. PAMIDRONATE DISODIUM [Concomitant]
  4. AMITRIPTLINE HCL [Concomitant]

REACTIONS (5)
  - ANAEMIA [None]
  - ESSENTIAL TREMOR [None]
  - PANCYTOPENIA [None]
  - PLATELET COUNT DECREASED [None]
  - SYNCOPE [None]
